FAERS Safety Report 21104352 (Version 1)
Quarter: 2022Q3

REPORT INFORMATION
  Report Type: Spontaneous
  Country: US (occurrence: None)
  Receive Date: 20220719
  Receipt Date: 20220719
  Transmission Date: 20221027
  Serious: Yes (Other)
  Sender: FDA-Public Use
  Company Number: None

PATIENT
  Age: 76 Year
  Sex: Male
  Weight: 58.5 kg

DRUGS (19)
  1. PAXLOVID [Suspect]
     Active Substance: NIRMATRELVIR\RITONAVIR
     Indication: COVID-19
     Dosage: OTHER QUANTITY : 20 TABLET(S);?FREQUENCY : TWICE A DAY;?
     Route: 048
     Dates: start: 20220629, end: 20220702
  2. DIVALPROEX SODIUM [Concomitant]
     Active Substance: DIVALPROEX SODIUM
  3. CITALOPRAM [Concomitant]
     Active Substance: CITALOPRAM HYDROBROMIDE
  4. GALANTAMINE [Concomitant]
     Active Substance: GALANTAMINE
  5. RISPERIDONE [Concomitant]
     Active Substance: RISPERIDONE
  6. LEVOTHYROXINE [Concomitant]
     Active Substance: LEVOTHYROXINE
  7. ARMOUR THYROID [Concomitant]
     Active Substance: THYROID, PORCINE
  8. TESTOSTERONE [Concomitant]
     Active Substance: TESTOSTERONE
  9. Vitamin Powder Energy Revitalizing Formula [Concomitant]
  10. CANNABIDIOL [Concomitant]
     Active Substance: CANNABIDIOL
  11. ViraPro [Concomitant]
  12. VECTOMEGA [Concomitant]
  13. ZINC [Concomitant]
     Active Substance: ZINC
  14. HERBALS\SAW PALMETTO [Concomitant]
     Active Substance: HERBALS\SAW PALMETTO
  15. Pearls Elite Probiotic [Concomitant]
  16. VITAMIN B COMPLEX [Concomitant]
     Active Substance: CYANOCOBALAMIN\DEXPANTHENOL\NIACINAMIDE\PYRIDOXINE HYDROCHLORIDE\RIBOFLAVIN 5^-PHOSPHATE SODIUM\THIA
  17. Saga pro [Concomitant]
  18. Ceramic [Concomitant]
  19. MELATONIN [Concomitant]
     Active Substance: MELATONIN

REACTIONS (9)
  - Somnolence [None]
  - Cognitive disorder [None]
  - Disturbance in attention [None]
  - Disturbance in attention [None]
  - Emotional distress [None]
  - Inhibitory drug interaction [None]
  - Drug ineffective [None]
  - Crying [None]
  - Apathy [None]

NARRATIVE: CASE EVENT DATE: 20220701
